FAERS Safety Report 8880706 (Version 2)
Quarter: 2013Q2

REPORT INFORMATION
  Report Type: Spontaneous
  Country: JP (occurrence: JP)
  Receive Date: 20121101
  Receipt Date: 20130412
  Transmission Date: 20140414
  Serious: Yes (Hospitalization)
  Sender: FDA-Public Use
  Company Number: JP-JNJFOC-20121014422

PATIENT
  Age: 70 Year
  Sex: Female
  Weight: 43 kg

DRUGS (18)
  1. REMICADE [Suspect]
     Indication: COLITIS ULCERATIVE
     Dosage: 5TH INFUSION
     Route: 042
     Dates: start: 20120824
  2. REMICADE [Suspect]
     Indication: COLITIS ULCERATIVE
     Route: 042
     Dates: start: 20120629
  3. REMICADE [Suspect]
     Indication: COLITIS ULCERATIVE
     Route: 042
     Dates: start: 20120323
  4. REMICADE [Suspect]
     Indication: COLITIS ULCERATIVE
     Route: 042
     Dates: start: 20120406
  5. REMICADE [Suspect]
     Indication: COLITIS ULCERATIVE
     Route: 042
     Dates: start: 20120501
  6. REMICADE [Suspect]
     Indication: RHEUMATOID ARTHRITIS
     Dosage: 5TH INFUSION
     Route: 042
     Dates: start: 20120824
  7. REMICADE [Suspect]
     Indication: RHEUMATOID ARTHRITIS
     Route: 042
     Dates: start: 20120629
  8. REMICADE [Suspect]
     Indication: RHEUMATOID ARTHRITIS
     Route: 042
     Dates: start: 20120323
  9. REMICADE [Suspect]
     Indication: RHEUMATOID ARTHRITIS
     Route: 042
     Dates: start: 20120406
  10. REMICADE [Suspect]
     Indication: RHEUMATOID ARTHRITIS
     Route: 042
     Dates: start: 20120501
  11. METOLATE [Suspect]
     Indication: RHEUMATOID ARTHRITIS
     Route: 048
  12. PREDNISOLONE [Suspect]
     Indication: PRODUCT USED FOR UNKNOWN INDICATION
     Route: 048
  13. FOLIAMIN [Concomitant]
     Route: 048
  14. FERRUM [Concomitant]
     Route: 048
  15. BLOPRESS [Concomitant]
     Route: 048
  16. GASTER D [Concomitant]
     Route: 048
  17. MUCOSTA [Concomitant]
     Route: 048
  18. INFREE S [Concomitant]
     Route: 048

REACTIONS (2)
  - Tuberculosis gastrointestinal [Recovered/Resolved]
  - Pulmonary tuberculosis [Recovering/Resolving]
